FAERS Safety Report 15800808 (Version 1)
Quarter: 2019Q1

REPORT INFORMATION
  Report Type: Report from Study
  Country: BE (occurrence: BE)
  Receive Date: 20190109
  Receipt Date: 20190109
  Transmission Date: 20190417
  Serious: Yes (Hospitalization)
  Sender: FDA-Public Use
  Company Number: BE-ACCORD-101036

PATIENT
  Age: 73 Year
  Sex: Male
  Weight: 76 kg

DRUGS (8)
  1. IRINOTECAN [Suspect]
     Active Substance: IRINOTECAN
     Indication: COLORECTAL CANCER METASTATIC
     Dosage: IRINOTECAN HYDROCHLORIDE ENCAPSULATED IN NANOLIPOSOMAL PARTICLES
     Route: 042
  2. AFLIBERCEPT [Suspect]
     Active Substance: AFLIBERCEPT
     Indication: COLORECTAL CANCER METASTATIC
     Route: 042
     Dates: start: 20170713, end: 20170713
  3. RUPATALL [Concomitant]
     Route: 065
  4. LEUCOVORIN. [Suspect]
     Active Substance: LEUCOVORIN
     Indication: COLORECTAL CANCER METASTATIC
     Dosage: CYCLICAL
     Route: 042
  5. SOFRASOLONE [Concomitant]
     Active Substance: FRAMYCETIN SULFATE\NAPHAZOLINE NITRATE\PREDNISOLONE ACETATE
     Route: 065
  6. FLUOROURACIL. [Suspect]
     Active Substance: FLUOROURACIL
     Indication: COLORECTAL CANCER METASTATIC
     Route: 042
  7. PANTOMED [Concomitant]
     Route: 065
  8. NEUPOGEN [Concomitant]
     Active Substance: FILGRASTIM
     Route: 065

REACTIONS (2)
  - Mucosal inflammation [Not Recovered/Not Resolved]
  - Hypertension [Not Recovered/Not Resolved]

NARRATIVE: CASE EVENT DATE: 20170727
